FAERS Safety Report 20145405 (Version 1)
Quarter: 2021Q4

REPORT INFORMATION
  Report Type: Spontaneous
  Country: KR (occurrence: None)
  Receive Date: 20211203
  Receipt Date: 20211203
  Transmission Date: 20220303
  Serious: Yes (Other)
  Sender: FDA-Public Use
  Company Number: 2021A849068

PATIENT
  Age: 50 Year
  Sex: Female

DRUGS (4)
  1. IMFINZI [Suspect]
     Active Substance: DURVALUMAB
     Route: 042
  2. AFATINIB [Concomitant]
     Active Substance: AFATINIB
  3. PACLITAXEL [Concomitant]
     Active Substance: PACLITAXEL
  4. CARBOPLATIN [Concomitant]
     Active Substance: CARBOPLATIN

REACTIONS (1)
  - Malignant neoplasm progression [Unknown]
